FAERS Safety Report 9335126 (Version 1)
Quarter: 2013Q2

REPORT INFORMATION
  Report Type: Spontaneous
  Country: US (occurrence: US)
  Receive Date: 20130606
  Receipt Date: 20130606
  Transmission Date: 20140414
  Serious: Yes (Hospitalization)
  Sender: FDA-Public Use
  Company Number: US-GLAXOSMITHKLINE-A1025758A

PATIENT
  Age: 64 Year
  Sex: Female

DRUGS (7)
  1. VOTRIENT [Suspect]
     Indication: RENAL CANCER
     Dosage: 400MG TWICE PER DAY
     Route: 048
     Dates: start: 20130412
  2. CALCIUM [Concomitant]
  3. VITAMIN D [Concomitant]
  4. IRON [Concomitant]
  5. METOPROLOL [Concomitant]
  6. PROTONIX [Concomitant]
  7. LIPITOR [Concomitant]

REACTIONS (3)
  - Seizure like phenomena [Unknown]
  - Confusional state [Unknown]
  - Hallucination [Unknown]
